FAERS Safety Report 6057118-X (Version None)
Quarter: 2009Q1

REPORT INFORMATION
  Report Type: 
  Country: None (occurrence: None)
  Receive Date: 20090129
  Receipt Date: 20090119
  Transmission Date: 20090719
  Serious: Yes (Other)
  Sender: FDA-Public Use
  Company Number: US-ROCHE-505541

PATIENT
  Age: 80 Year
  Sex: Female

DRUGS (2)
  1. BONIVA [Suspect]
     Indication: OSTEOPOROSIS
     Route: 048
     Dates: start: 20070601
  2. LEVOTHROID [Concomitant]
     Dosage: DRUG REPORTED AS LEVATHROID IN EARLIER REPORT.

REACTIONS (5)
  - BONE DISORDER [None]
  - BREAST TENDERNESS [None]
  - CATARACT [None]
  - FALL [None]
  - PAIN [None]
